FAERS Safety Report 10698162 (Version 7)
Quarter: 2017Q2

REPORT INFORMATION
  Report Type: Report from Study
  Country: US (occurrence: US)
  Receive Date: 20150108
  Receipt Date: 20170629
  Transmission Date: 20170829
  Serious: Yes (Other)
  Sender: FDA-Public Use
  Company Number: US-SA-2014SA174813

PATIENT
  Age: 33 Year
  Sex: Female

DRUGS (21)
  1. FUROSEMIDE. [Concomitant]
     Active Substance: FUROSEMIDE
     Dosage: SOLUTION
     Route: 065
  2. CALCIUM GLUCONATE. [Concomitant]
     Active Substance: CALCIUM GLUCONATE
     Route: 065
  3. FLONASE [Concomitant]
     Active Substance: FLUTICASONE PROPIONATE
     Route: 065
  4. AUBAGIO [Suspect]
     Active Substance: TERIFLUNOMIDE
     Indication: MULTIPLE SCLEROSIS
     Route: 048
  5. ZOFRAN [Concomitant]
     Active Substance: ONDANSETRON HYDROCHLORIDE
     Route: 065
  6. OXYCODONE [Concomitant]
     Active Substance: OXYCODONE
     Route: 065
  7. REGLAN [Concomitant]
     Active Substance: METOCLOPRAMIDE HYDROCHLORIDE
     Route: 065
  8. AMPYRA [Suspect]
     Active Substance: DALFAMPRIDINE
     Indication: MULTIPLE SCLEROSIS
     Dosage: STREGTH: 10MG TABLET
     Route: 048
     Dates: start: 20170123
  9. BREO ELLIPTA [Concomitant]
     Active Substance: FLUTICASONE FUROATE\VILANTEROL TRIFENATATE
     Route: 065
  10. ABILIFY [Concomitant]
     Active Substance: ARIPIPRAZOLE
     Route: 065
  11. MECLIZINE HYDROCHLORIDE. [Concomitant]
     Active Substance: MECLIZINE HYDROCHLORIDE
     Route: 065
  12. DESMOPRESSIN ACETATE. [Concomitant]
     Active Substance: DESMOPRESSIN ACETATE
     Route: 065
  13. MAGNESIUM CHELATE [Concomitant]
     Active Substance: MAGNESIUM
     Route: 065
  14. DEXILANT [Concomitant]
     Active Substance: DEXLANSOPRAZOLE
     Route: 065
  15. TOPAMAX [Concomitant]
     Active Substance: TOPIRAMATE
     Route: 065
  16. TYSABRI [Concomitant]
     Active Substance: NATALIZUMAB
     Route: 065
  17. AUBAGIO [Suspect]
     Active Substance: TERIFLUNOMIDE
     Indication: MULTIPLE SCLEROSIS
     Route: 048
     Dates: start: 20141212, end: 201502
  18. GABAPENTIN. [Concomitant]
     Active Substance: GABAPENTIN
     Route: 065
  19. BOTOX [Concomitant]
     Active Substance: ONABOTULINUMTOXINA
     Route: 065
  20. VITAMIN D [Concomitant]
     Active Substance: CHOLECALCIFEROL
     Route: 065
  21. OXYCONTIN [Concomitant]
     Active Substance: OXYCODONE HYDROCHLORIDE
     Route: 065

REACTIONS (19)
  - Idiopathic intracranial hypertension [Unknown]
  - Somnolence [Unknown]
  - Drug ineffective [Unknown]
  - Fall [Unknown]
  - Drug dose omission [Unknown]
  - Multiple sclerosis relapse [Not Recovered/Not Resolved]
  - Constipation [Unknown]
  - Blood urine present [Unknown]
  - Dizziness [Unknown]
  - Blood pressure decreased [Unknown]
  - Mobility decreased [Unknown]
  - Abdominal pain [Unknown]
  - Ligament sprain [Recovered/Resolved]
  - Condition aggravated [Unknown]
  - Urinary tract infection [Unknown]
  - Flushing [Unknown]
  - Fall [Not Recovered/Not Resolved]
  - Gait disturbance [Not Recovered/Not Resolved]
  - Asthenia [Not Recovered/Not Resolved]

NARRATIVE: CASE EVENT DATE: 201412
